FAERS Safety Report 25621697 (Version 1)
Quarter: 2025Q3

REPORT INFORMATION
  Report Type: Report from Study
  Country: EU (occurrence: EU)
  Receive Date: 20250730
  Receipt Date: 20250730
  Transmission Date: 20251021
  Serious: Yes (Life-Threatening, Hospitalization)
  Sender: OCTAPHARMA
  Company Number: EU-OCTA-2025000636

PATIENT
  Age: 73 Year
  Sex: Female

DRUGS (4)
  1. CUTAQUIG [Suspect]
     Active Substance: HUMAN IMMUNOGLOBULIN G
     Indication: Immunodeficiency common variable
     Dosage: INFUSION RATE: 18 ML PER HOUR
     Route: 058
     Dates: start: 20250110
  2. CUTAQUIG [Suspect]
     Active Substance: HUMAN IMMUNOGLOBULIN G
     Dosage: INFUSION RATE: 18 ML PER HOUR
     Route: 058
     Dates: start: 20250110
  3. CUTAQUIG [Suspect]
     Active Substance: HUMAN IMMUNOGLOBULIN G
     Dosage: INFUSION RATE: 18 ML PER HOUR
     Route: 058
     Dates: start: 20250110
  4. CUTAQUIG [Suspect]
     Active Substance: HUMAN IMMUNOGLOBULIN G
     Dosage: INFUSION RATE: 18 ML PER HOUR
     Route: 058
     Dates: start: 20250110

REACTIONS (8)
  - Loss of control of legs [Recovering/Resolving]
  - Asthenia [Recovering/Resolving]
  - Decreased appetite [Recovering/Resolving]
  - Aphasia [Recovering/Resolving]
  - Abscess neck [Recovering/Resolving]
  - Abscess [Recovering/Resolving]
  - Sepsis [Recovering/Resolving]
  - Treatment noncompliance [Unknown]

NARRATIVE: CASE EVENT DATE: 20250110
